FAERS Safety Report 4440088-5 (Version None)
Quarter: 2004Q3

REPORT INFORMATION
  Report Type: 
  Country: None (occurrence: None)
  Receive Date: 20040902
  Receipt Date: 20030929
  Transmission Date: 20050211
  Serious: Yes (Hospitalization)
  Sender: FDA-Public Use
  Company Number: US-MERCK-0310USA00090

PATIENT
  Age: 62 Year
  Sex: Female
  Weight: 86 kg

DRUGS (10)
  1. [THERAPY UNSPECIFIED] [Concomitant]
     Indication: CARDIAC DISORDER
     Route: 065
     Dates: start: 19940101
  2. [THERAPY UNSPECIFIED] [Concomitant]
     Route: 065
  3. LOTREL [Concomitant]
     Route: 048
     Dates: start: 20000311
  4. CELEXA [Concomitant]
     Route: 048
     Dates: start: 20000311
  5. MAXZIDE [Concomitant]
     Route: 065
  6. LOPRESSOR [Concomitant]
     Route: 048
     Dates: start: 20000311
  7. NASONEX [Concomitant]
     Route: 055
     Dates: start: 20000311
  8. NIFEDIPINE [Concomitant]
     Route: 065
  9. NITROSTAT [Concomitant]
     Route: 065
  10. VIOXX [Suspect]
     Indication: RHEUMATOID ARTHRITIS
     Route: 048
     Dates: start: 20000301

REACTIONS (35)
  - ABDOMINAL PAIN UPPER [None]
  - ACUTE PRERENAL FAILURE [None]
  - ADVERSE EVENT [None]
  - ASTHENIA [None]
  - BLOOD CHOLESTEROL INCREASED [None]
  - CARDIAC FAILURE CONGESTIVE [None]
  - CATARACT NUCLEAR [None]
  - CHEST PAIN [None]
  - DEMENTIA [None]
  - DIABETES MELLITUS [None]
  - DIZZINESS [None]
  - EMOTIONAL DISTRESS [None]
  - EYE PAIN [None]
  - GASTRIC DISORDER [None]
  - GASTROOESOPHAGEAL REFLUX DISEASE [None]
  - GOUT [None]
  - HAEMORRHAGE [None]
  - HEADACHE [None]
  - HYPERTENSION [None]
  - HYPERTENSIVE CRISIS [None]
  - HYPERTENSIVE HEART DISEASE [None]
  - HYPOVOLAEMIA [None]
  - LOCAL SWELLING [None]
  - MAJOR DEPRESSION [None]
  - MEMORY IMPAIRMENT [None]
  - NAUSEA [None]
  - OEDEMA PERIPHERAL [None]
  - PSEUDODEMENTIA [None]
  - PYELONEPHRITIS [None]
  - RENAL FAILURE CHRONIC [None]
  - SEPSIS [None]
  - SINUSITIS [None]
  - SLEEP DISORDER [None]
  - SOFT TISSUE INFECTION [None]
  - URINARY TRACT INFECTION [None]
